FAERS Safety Report 15959183 (Version 1)
Quarter: 2019Q1

REPORT INFORMATION
  Report Type: Spontaneous
  Country: US (occurrence: US)
  Receive Date: 20190214
  Receipt Date: 20190214
  Transmission Date: 20190417
  Serious: Yes (Other)
  Sender: FDA-Public Use
  Company Number: US-LUPIN HEALTHCARE (UK) LIMITED-2019-00676

PATIENT
  Sex: Female

DRUGS (1)
  1. LEVETIRACETAM TABLETS USP, 1000 MG [Suspect]
     Active Substance: LEVETIRACETAM
     Indication: PRODUCT USED FOR UNKNOWN INDICATION
     Dosage: 1000 MILLIGRAM, QD
     Route: 048
     Dates: start: 201307

REACTIONS (3)
  - Cerebral haemorrhage [Unknown]
  - Seizure [Unknown]
  - Aneurysm [Unknown]
